FAERS Safety Report 24700595 (Version 1)
Quarter: 2024Q4

REPORT INFORMATION
  Report Type: Other
  Country: GB (occurrence: GB)
  Receive Date: 20241205
  Receipt Date: 20241205
  Transmission Date: 20250115
  Serious: Yes (Disabling, Other)
  Sender: ASPEN
  Company Number: None

PATIENT

DRUGS (4)
  1. DEXAMETHASONE [Suspect]
     Active Substance: DEXAMETHASONE
     Indication: Abscess drainage
     Dosage: UNK
     Route: 065
     Dates: start: 20240226, end: 20240315
  2. CIPROFLOXACIN [Suspect]
     Active Substance: CIPROFLOXACIN
     Indication: Abscess drainage
     Dosage: UNK
     Route: 065
     Dates: start: 20240226, end: 20240315
  3. METRONIDAZOLE [Concomitant]
     Active Substance: METRONIDAZOLE
     Indication: Abscess drainage
     Dosage: UNK
     Route: 065
     Dates: start: 20240226, end: 20240315
  4. CEPHALEXIN [Concomitant]
     Active Substance: CEPHALEXIN
     Indication: Abscess drainage
     Dosage: UNK
     Route: 065
     Dates: start: 20240226, end: 20240315

REACTIONS (6)
  - Off label use [Unknown]
  - Arthralgia [Unknown]
  - Arthralgia [Unknown]
  - Joint swelling [Unknown]
  - Tendon pain [Not Recovered/Not Resolved]
  - Myalgia [Not Recovered/Not Resolved]

NARRATIVE: CASE EVENT DATE: 20240325
